FAERS Safety Report 5931032-X (Version None)
Quarter: 2008Q4

REPORT INFORMATION
  Report Type: 
  Country: None (occurrence: None)
  Receive Date: 20081027
  Receipt Date: 20081016
  Transmission Date: 20090506
  Serious: Yes (Other)
  Sender: FDA-Public Use
  Company Number: FR-ASTRAZENECA-2008CG01521

PATIENT
  Age: 30 Year
  Sex: Male

DRUGS (2)
  1. SYMBICORT [Suspect]
     Indication: ASTHMA
     Dosage: 160/4.5 MCG TWO INHALATIONS TWICE DAILY
     Route: 055
     Dates: end: 20070101
  2. SYMBICORT [Suspect]
     Dosage: 160/4.5 MCG TWO INHALATIONS TWICE DAILY
     Route: 055
     Dates: start: 20080101

REACTIONS (1)
  - OSTEONECROSIS [None]
